FAERS Safety Report 11428159 (Version 1)
Quarter: 2015Q3

REPORT INFORMATION
  Report Type: Spontaneous
  Country: US (occurrence: US)
  Receive Date: 20150828
  Receipt Date: 20150828
  Transmission Date: 20151125
  Serious: No
  Sender: FDA-Public Use
  Company Number: US-ROCHE-1264251

PATIENT
  Sex: Male

DRUGS (4)
  1. PROMACTA [Concomitant]
     Active Substance: ELTROMBOPAG OLAMINE
  2. RIBAVIRIN. [Suspect]
     Active Substance: RIBAVIRIN
     Indication: CHRONIC HEPATITIS C
     Dosage: DIVIDED DOSES (600/600)
     Route: 065
     Dates: start: 20130816
  3. PEGASYS [Suspect]
     Active Substance: PEGINTERFERON ALFA-2A
     Indication: CHRONIC HEPATITIS C
     Route: 058
     Dates: start: 20130816
  4. TELAPREVIR [Suspect]
     Active Substance: TELAPREVIR
     Indication: CHRONIC HEPATITIS C
     Route: 065
     Dates: start: 20130816

REACTIONS (12)
  - Gingival pain [Unknown]
  - Tremor [Unknown]
  - Somnolence [Unknown]
  - Gait disturbance [Unknown]
  - Abdominal pain [Unknown]
  - Irritability [Unknown]
  - Fatigue [Unknown]
  - Memory impairment [Unknown]
  - Headache [Unknown]
  - Mood altered [Unknown]
  - Asthenia [Unknown]
  - Nausea [Unknown]
